FAERS Safety Report 5563024-7 (Version None)
Quarter: 2007Q4

REPORT INFORMATION
  Report Type: 
  Country: None (occurrence: None)
  Receive Date: 20071217
  Receipt Date: 20071204
  Transmission Date: 20080405
  Serious: Yes (Other)
  Sender: FDA-Public Use
  Company Number: GB-ROCHE-535204

PATIENT
  Age: 33 Year
  Sex: Female
  Weight: 117.1 kg

DRUGS (1)
  1. ORLISTAT [Suspect]
     Indication: OBESITY
     Route: 048
     Dates: start: 20070705

REACTIONS (1)
  - ABORTION SPONTANEOUS [None]
